FAERS Safety Report 8127113-5 (Version None)
Quarter: 2011Q4

REPORT INFORMATION
  Report Type: 
  Country: None (occurrence: None)
  Receive Date: 20111227
  Receipt Date: 20111004
  Transmission Date: 20120403
  Serious: No
  Sender: FDA-Public Use
  Company Number: PHHY2011US29856

PATIENT
  Age: 50 Year
  Sex: Female
  Weight: 53.5 kg

DRUGS (8)
  1. IBUPROFEN [Concomitant]
  2. OXYCODONE HCL [Concomitant]
  3. GABAPENTIN [Concomitant]
  4. PROBIOTICS (MICROORGANISMS W/PROBIOTIC ACTION) [Concomitant]
  5. ZANAFLEX [Concomitant]
  6. AVINZA [Concomitant]
  7. BACLOFEN [Concomitant]
  8. GILENYA [Suspect]
     Indication: RELAPSING-REMITTING MULTIPLE SCLEROSIS
     Dosage: 0.5 MG, QD, ORAL, 0.5 MG, QOD, ORAL
     Route: 048
     Dates: start: 20110314, end: 20110601

REACTIONS (6)
  - TREMOR [None]
  - SINUSITIS [None]
  - BALANCE DISORDER [None]
  - CONFUSIONAL STATE [None]
  - ASTHENIA [None]
  - INCORRECT DOSE ADMINISTERED [None]
